FAERS Safety Report 9350841 (Version 2)
Quarter: 2013Q3

REPORT INFORMATION
  Report Type: Spontaneous
  Country: IE (occurrence: IE)
  Receive Date: 20130617
  Receipt Date: 20130709
  Transmission Date: 20140515
  Serious: Yes (Hospitalization)
  Sender: FDA-Public Use
  Company Number: IE-MILLENNIUM PHARMACEUTICALS, INC.-2013-04520

PATIENT
  Sex: 0

DRUGS (12)
  1. VELCADE [Suspect]
     Indication: PLASMA CELL MYELOMA
     Dosage: 1.3 MG/M2, CYCLIC
     Route: 042
     Dates: start: 20100805
  2. INNOHEP                            /00889602/ [Concomitant]
     Dosage: 14000 IU, QD
     Route: 058
  3. VALTREX [Concomitant]
     Dosage: 500 MG, QD
  4. LOSEC                              /00661201/ [Concomitant]
     Dosage: 40 MG, QD
  5. CARDICOR [Concomitant]
     Dosage: 8 MG, QD
  6. SEPTRIN [Concomitant]
     Dosage: 960 MG, 3/WEEK
  7. PANADOL                            /00020001/ [Concomitant]
     Dosage: UNK, PRN
  8. ASPIRIN [Concomitant]
     Dosage: 75 MG, UNK
  9. LIPITOR [Concomitant]
     Dosage: 40 MG, UNK
  10. THALIDOMIDE [Concomitant]
     Dosage: 50 MG, QD
  11. FRUMIL [Concomitant]
     Dosage: UNK, QD
  12. ELTROXIN [Concomitant]
     Dosage: 100 MG, QD

REACTIONS (1)
  - Lower respiratory tract infection fungal [Recovered/Resolved]
